FAERS Safety Report 19706226 (Version 1)
Quarter: 2021Q3

REPORT INFORMATION
  Report Type: Spontaneous
  Country: DE (occurrence: DE)
  Receive Date: 20210817
  Receipt Date: 20210817
  Transmission Date: 20211014
  Serious: Yes (Other)
  Sender: FDA-Public Use
  Company Number: DE-AUROBINDO-AUR-APL-2015-05992

PATIENT
  Sex: Male
  Weight: 3.6 kg

DRUGS (2)
  1. VENLAFAXINE 75MG [Suspect]
     Active Substance: VENLAFAXINE HYDROCHLORIDE
     Indication: BORDERLINE PERSONALITY DISORDER
     Dosage: 75 MG, IN THE LAST TWO WEEKS OF PREGNANCY
     Route: 064
     Dates: start: 20140730, end: 20150427
  2. VENLAFAXINE 75MG [Suspect]
     Active Substance: VENLAFAXINE HYDROCHLORIDE
     Dosage: 150 MG, DURING PREGNANCY
     Route: 064
     Dates: start: 20140730, end: 20150427

REACTIONS (6)
  - Foetal exposure during pregnancy [Recovered/Resolved]
  - Tremor [Recovered/Resolved]
  - Myoclonus [Recovered/Resolved]
  - Insomnia [Recovered/Resolved]
  - Drug withdrawal syndrome neonatal [Recovered/Resolved]
  - Vomiting [Recovered/Resolved]
